FAERS Safety Report 9702359 (Version 2)
Quarter: 2013Q4

REPORT INFORMATION
  Report Type: Spontaneous
  Country: US (occurrence: US)
  Receive Date: 20131121
  Receipt Date: 20131213
  Transmission Date: 20140711
  Serious: Yes (Death)
  Sender: FDA-Public Use
  Company Number: US-PFIZER INC-2013332528

PATIENT
  Age: 52 Year
  Sex: Male

DRUGS (1)
  1. SUTENT [Suspect]
     Indication: RENAL CANCER
     Dosage: 50MG DAILY  (X 28 DAYS, OFF X 14 DAYS)
     Route: 048
     Dates: start: 20130719

REACTIONS (2)
  - Disease progression [Fatal]
  - Renal cancer [Fatal]
